FAERS Safety Report 4367901-4 (Version None)
Quarter: 2004Q2

REPORT INFORMATION
  Report Type: 
  Country: None (occurrence: None)
  Receive Date: 20040601
  Receipt Date: 19950901
  Transmission Date: 20050107
  Serious: Yes (Death, Hospitalization)
  Sender: FDA-Public Use
  Company Number: WAES 95110589

PATIENT
  Age: 5 Decade
  Sex: Female

DRUGS (7)
  1. INDOCIN I.V. [Suspect]
     Indication: PATENT DUCTUS ARTERIOSUS
     Dosage: 0.22 MG/DAILY IV
     Route: 042
     Dates: start: 19950514, end: 19950515
  2. AMPICILLIN [Concomitant]
  3. DECODERM SINE GENTAMYCIN [Concomitant]
  4. DOBUTAMINE [Concomitant]
  5. DOPAMINE HCL [Concomitant]
  6. DOXAPRAM HYDROCHLORIDE INJECTION [Concomitant]
  7. SURFACTANT, NOS [Concomitant]

REACTIONS (3)
  - ACIDOSIS [None]
  - ANURIA [None]
  - RENAL FAILURE [None]
